FAERS Safety Report 4390842-3 (Version None)
Quarter: 2004Q3

REPORT INFORMATION
  Report Type: 
  Country: None (occurrence: None)
  Receive Date: 20040707
  Receipt Date: 20040623
  Transmission Date: 20050211
  Serious: Yes (Hospitalization)
  Sender: FDA-Public Use
  Company Number: FR-BRISTOL-MYERS SQUIBB COMPANY-12624722

PATIENT
  Age: 54 Year
  Sex: Female

DRUGS (6)
  1. ACETAMINOPHEN [Suspect]
     Route: 042
     Dates: start: 20030911, end: 20030911
  2. CEFAZOLIN [Suspect]
     Route: 042
     Dates: start: 20030911, end: 20030911
  3. TRACRIUM [Suspect]
     Route: 042
     Dates: start: 20030911, end: 20030911
  4. MIDAZOLAM HCL [Suspect]
     Route: 042
     Dates: start: 20031111, end: 20030911
  5. DIPRIVAN [Suspect]
     Route: 042
     Dates: start: 20030911, end: 20030911
  6. SUFENTA [Suspect]
     Route: 042
     Dates: start: 20030911, end: 20030911

REACTIONS (3)
  - BRADYCARDIA [None]
  - SHOCK [None]
  - VENTRICULAR FIBRILLATION [None]
